FAERS Safety Report 21518201 (Version 4)
Quarter: 2023Q1

REPORT INFORMATION
  Report Type: Report from Study
  Country: CA (occurrence: None)
  Receive Date: 20221028
  Receipt Date: 20230109
  Transmission Date: 20230418
  Serious: Yes (Death, Life-Threatening, Hospitalization)
  Sender: FDA-Public Use
  Company Number: CA-ROCHE-3207146

PATIENT
  Age: 76 Year
  Sex: Male

DRUGS (5)
  1. VEMURAFENIB [Suspect]
     Active Substance: VEMURAFENIB
     Indication: Bile duct cancer
     Dosage: THE LAST DOSE PRIOR TO THE SAE WAS ON 23/OCT/2022
     Route: 048
     Dates: start: 20221013
  2. COBIMETINIB [Suspect]
     Active Substance: COBIMETINIB
     Indication: Bile duct cancer
     Dosage: THE LAST DOSE PRIOR TO THE SAE WAS ON 23/OCT/2022
     Route: 048
     Dates: start: 20221013
  3. MIDAZOLAM [Concomitant]
     Active Substance: MIDAZOLAM
     Dates: start: 20221024
  4. FUROSEMIDE [Concomitant]
     Active Substance: FUROSEMIDE
     Dates: start: 20221024
  5. DALTEPARIN [Concomitant]
     Active Substance: DALTEPARIN
     Dates: start: 20221024

REACTIONS (9)
  - Acute kidney injury [Not Recovered/Not Resolved]
  - Rhabdomyolysis [Fatal]
  - Acidosis [Unknown]
  - Blood creatine phosphokinase increased [Unknown]
  - Blood creatinine increased [Unknown]
  - Diarrhoea [Unknown]
  - Pyrexia [Unknown]
  - Hypoxia [Unknown]
  - Syncope [Unknown]

NARRATIVE: CASE EVENT DATE: 20221015
